FAERS Safety Report 6311784-X (Version None)
Quarter: 2009Q3

REPORT INFORMATION
  Report Type: 
  Country: None (occurrence: None)
  Receive Date: 20090813
  Receipt Date: 20090813
  Transmission Date: 20100115
  Serious: Yes (Life-Threatening, Hospitalization)
  Sender: FDA-Public Use
  Company Number: None

PATIENT
  Age: 25 Year
  Sex: Female
  Weight: 58.9676 kg

DRUGS (7)
  1. YASMIN [Suspect]
     Indication: CONTRACEPTION
     Dosage: DAILY 047
  2. GARDASIL MERCK + CO. [Suspect]
     Indication: PAPILLOMA VIRAL INFECTION
     Dosage: 3 TIMES 064
     Dates: start: 20070418
  3. GARDASIL MERCK + CO. [Suspect]
     Indication: PROPHYLAXIS
     Dosage: 3 TIMES 064
     Dates: start: 20070418
  4. GARDASIL MERCK + CO. [Suspect]
     Indication: PAPILLOMA VIRAL INFECTION
     Dosage: 3 TIMES 064
     Dates: start: 20070612
  5. GARDASIL MERCK + CO. [Suspect]
     Indication: PROPHYLAXIS
     Dosage: 3 TIMES 064
     Dates: start: 20070612
  6. GARDASIL MERCK + CO. [Suspect]
     Indication: PAPILLOMA VIRAL INFECTION
     Dosage: 3 TIMES 064
     Dates: start: 20071016
  7. GARDASIL MERCK + CO. [Suspect]
     Indication: PROPHYLAXIS
     Dosage: 3 TIMES 064
     Dates: start: 20071016

REACTIONS (5)
  - ARTHRALGIA [None]
  - ERYTHEMA [None]
  - PAIN [None]
  - SWELLING [None]
  - THROMBOSIS [None]
